FAERS Safety Report 7879688-9 (Version None)
Quarter: 2011Q4

REPORT INFORMATION
  Report Type: 
  Country: None (occurrence: None)
  Receive Date: 20111101
  Receipt Date: 20110829
  Transmission Date: 20120403
  Serious: No
  Sender: FDA-Public Use
  Company Number: US-ABBOTT-11P-163-0850716-00

PATIENT
  Age: 76 Year
  Sex: Female

DRUGS (1)
  1. BIAXIN [Suspect]
     Indication: PROPHYLAXIS AGAINST GASTROINTESTINAL ULCER
     Dates: start: 20100101, end: 20100101

REACTIONS (5)
  - COLITIS [None]
  - ABDOMINAL PAIN UPPER [None]
  - GASTROINTESTINAL DISORDER [None]
  - DIARRHOEA [None]
  - RECTAL HAEMORRHAGE [None]
